FAERS Safety Report 10268615 (Version 1)
Quarter: 2014Q2

REPORT INFORMATION
  Report Type: Spontaneous
  Country: US (occurrence: None)
  Receive Date: 20140627
  Receipt Date: 20140627
  Transmission Date: 20141212
  Serious: Yes (Life-Threatening)
  Sender: FDA-Public Use
  Company Number: None

PATIENT
  Age: 61 Year
  Sex: Female
  Weight: 104.33 kg

DRUGS (2)
  1. MELOXICAM [Suspect]
     Indication: ANTIINFLAMMATORY THERAPY
     Dosage: 1 PILL, ONCE DAILY, TAKEN BY MOUTH?
     Route: 048
     Dates: start: 20140505, end: 20140612
  2. MELOXICAM [Suspect]
     Dosage: 1 PILL, ONCE DAILY, TAKEN BY MOUTH?
     Route: 048
     Dates: start: 20140505, end: 20140612

REACTIONS (4)
  - Weight increased [None]
  - Blood pressure increased [None]
  - Angina pectoris [None]
  - Generalised oedema [None]
